FAERS Safety Report 15980513 (Version 1)
Quarter: 2019Q1

REPORT INFORMATION
  Report Type: Report from Study
  Country: DE (occurrence: DE)
  Receive Date: 20190219
  Receipt Date: 20190219
  Transmission Date: 20190418
  Serious: Yes (Hospitalization)
  Sender: FDA-Public Use
  Company Number: DE-PFIZER INC-2019066101

PATIENT
  Age: 57 Year
  Sex: Male

DRUGS (10)
  1. LANTAREL [Suspect]
     Active Substance: METHOTREXATE SODIUM
     Dosage: 35 MG, WEEKLY
  2. NO SUBJECT DRUG [Suspect]
     Active Substance: UNSPECIFIED INGREDIENT
     Dosage: NO DOSE GIVEN
  3. NOVOPULMON [Concomitant]
     Active Substance: BUDESONIDE
     Dosage: UNK
  4. MABTHERA [Suspect]
     Active Substance: RITUXIMAB
     Dosage: 1000 MG, UNK
     Dates: end: 20180125
  5. CALCIUM [Concomitant]
     Active Substance: CALCIUM
     Dosage: UNK
  6. IBUFLAM [Concomitant]
     Active Substance: IBUPROFEN
     Dosage: UNK
  7. SALBUTAMOL [Concomitant]
     Active Substance: ALBUTEROL
     Dosage: UNK
  8. FOLIC ACID. [Concomitant]
     Active Substance: FOLIC ACID
     Dosage: UNK
  9. OMEPRAZOLE. [Concomitant]
     Active Substance: OMEPRAZOLE
     Dosage: UNK
  10. FORMATRIS [Concomitant]
     Active Substance: FORMOTEROL FUMARATE
     Dosage: UNK

REACTIONS (1)
  - Complicated appendicitis [Recovered/Resolved]

NARRATIVE: CASE EVENT DATE: 20180411
